FAERS Safety Report 22693772 (Version 3)
Quarter: 2023Q4

REPORT INFORMATION
  Report Type: Spontaneous
  Country: JP (occurrence: JP)
  Receive Date: 20230711
  Receipt Date: 20231012
  Transmission Date: 20240110
  Serious: Yes (Hospitalization, Other)
  Sender: FDA-Public Use
  Company Number: JP-ONO-2023JP017720

PATIENT

DRUGS (1)
  1. OPDIVO [Suspect]
     Active Substance: NIVOLUMAB
     Indication: Gastric cancer
     Dosage: UNK
     Route: 041

REACTIONS (3)
  - Immune-mediated hepatic disorder [Recovering/Resolving]
  - Neutrophil count decreased [Recovered/Resolved]
  - Metastatic gastric cancer [Unknown]
